FAERS Safety Report 7357096-7 (Version None)
Quarter: 2011Q1

REPORT INFORMATION
  Report Type: 
  Country: None (occurrence: None)
  Receive Date: 20110308
  Receipt Date: 20110222
  Transmission Date: 20110831
  Serious: No
  Sender: FDA-Public Use
  Company Number: 2011000654

PATIENT
  Age: 65 Year
  Sex: Female

DRUGS (1)
  1. TARCEVA [Suspect]
     Indication: LUNG NEOPLASM MALIGNANT
     Dosage: MG, ORAL
     Route: 048

REACTIONS (2)
  - DERMATITIS ACNEIFORM [None]
  - PURPURA [None]
